FAERS Safety Report 18071311 (Version 1)
Quarter: 2020Q3

REPORT INFORMATION
  Report Type: Spontaneous
  Country: US (occurrence: US)
  Receive Date: 20200724
  Receipt Date: 20200724
  Transmission Date: 20201103
  Serious: Yes (Other)
  Sender: FDA-Public Use
  Company Number: None

PATIENT
  Age: 41 Year
  Sex: Male
  Weight: 108 kg

DRUGS (1)
  1. NEW RHINO 25 TITANIUM 8000 [Suspect]
     Active Substance: DIETARY SUPPLEMENT
     Indication: SEXUAL DYSFUNCTION
     Dosage: FREQUENCY: 1 CAPSULE
     Route: 048
     Dates: start: 20200723, end: 20200723

REACTIONS (12)
  - Chest discomfort [None]
  - Blood pressure decreased [None]
  - Vomiting [None]
  - Piloerection [None]
  - Feeling cold [None]
  - Flushing [None]
  - Feeling abnormal [None]
  - Heart rate decreased [None]
  - Duodenogastric reflux [None]
  - Nausea [None]
  - Ocular hyperaemia [None]
  - Oropharyngeal pain [None]

NARRATIVE: CASE EVENT DATE: 20200723
